FAERS Safety Report 6681473-0 (Version None)
Quarter: 2010Q2

REPORT INFORMATION
  Report Type: 
  Country: None (occurrence: None)
  Receive Date: 20100414
  Receipt Date: 20100408
  Transmission Date: 20101027
  Serious: Yes (Other)
  Sender: FDA-Public Use
  Company Number: PRIUSA2000001427

PATIENT
  Sex: Female
  Weight: 62 kg

DRUGS (8)
  1. LEVAQUIN [Suspect]
     Indication: BRONCHITIS
     Route: 065
     Dates: start: 20000119, end: 20000125
  2. LEVAQUIN [Suspect]
     Indication: INFLUENZA
     Route: 065
     Dates: start: 20000119, end: 20000125
  3. BETAPACE [Suspect]
     Indication: ATRIAL FIBRILLATION
     Route: 048
     Dates: start: 19980301
  4. BETAPACE [Suspect]
     Route: 048
     Dates: start: 19980301
  5. TESSALON [Suspect]
     Indication: BRONCHITIS
     Route: 048
     Dates: start: 20000119
  6. TESSALON [Suspect]
     Indication: INFLUENZA
     Route: 048
     Dates: start: 20000119
  7. COMBIVENT [Suspect]
     Indication: BRONCHITIS
     Route: 055
     Dates: start: 20000119
  8. COMBIVENT [Suspect]
     Indication: INFLUENZA
     Route: 055
     Dates: start: 20000119

REACTIONS (2)
  - DIZZINESS [None]
  - ELECTROCARDIOGRAM QT PROLONGED [None]
